FAERS Safety Report 4491778-X (Version None)
Quarter: 2004Q4

REPORT INFORMATION
  Report Type: 
  Country: None (occurrence: None)
  Receive Date: 20041101
  Receipt Date: 20041026
  Transmission Date: 20050328
  Serious: Yes (Other)
  Sender: FDA-Public Use
  Company Number: 2003-06362

PATIENT
  Age: 57 Year
  Sex: Female
  Weight: 55 kg

DRUGS (8)
  1. ADEFOVIR DIPIVOXIL [Suspect]
     Indication: HEPATITIS B
     Dosage: 10 MG, 1 IN 1 D, ORAL
     Route: 048
     Dates: start: 20021218
  2. TACROLIMUS [Suspect]
     Indication: IMMUNOSUPPRESSION
     Dates: start: 20011201, end: 20031203
  3. LAMIVUDINE [Concomitant]
  4. PREDNISONE [Concomitant]
  5. LOSEC (OMEPRAZOLE) [Concomitant]
  6. CALCTRATE (CALCIUMCARBONATE) [Concomitant]
  7. CYCLOSPORINE [Concomitant]
  8. CELLCEPT [Concomitant]

REACTIONS (5)
  - BONE MARROW DEPRESSION [None]
  - HEPATITIS B [None]
  - HYPERSPLENISM ACQUIRED [None]
  - LIVER TRANSPLANT REJECTION [None]
  - THROMBOCYTOPENIA [None]
